FAERS Safety Report 8094404-6 (Version None)
Quarter: 2012Q1

REPORT INFORMATION
  Report Type: 
  Country: None (occurrence: None)
  Receive Date: 20120130
  Receipt Date: 20120124
  Transmission Date: 20120608
  Serious: Yes (Other)
  Sender: FDA-Public Use
  Company Number: US-AMGEN-USASP2012005346

PATIENT
  Sex: Female

DRUGS (1)
  1. NEUPOGEN [Suspect]
     Indication: IDIOPATHIC NEUTROPENIA
     Dates: start: 19890101, end: 19910101

REACTIONS (1)
  - ABORTION SPONTANEOUS [None]
